FAERS Safety Report 6212585-3 (Version None)
Quarter: 2009Q2

REPORT INFORMATION
  Report Type: 
  Country: None (occurrence: None)
  Receive Date: 20090603
  Receipt Date: 20090518
  Transmission Date: 20091009
  Serious: Yes (Congenital Anomaly)
  Sender: FDA-Public Use
  Company Number: CH-BAYER-200921645GPV

PATIENT
  Sex: Female

DRUGS (1)
  1. YASMIN [Suspect]
     Indication: CONTRACEPTION
     Route: 064
     Dates: end: 20081001

REACTIONS (1)
  - MICROGNATHIA [None]
